FAERS Safety Report 17229418 (Version 1)
Quarter: 2020Q1

REPORT INFORMATION
  Report Type: Spontaneous
  Country: US (occurrence: US)
  Receive Date: 20200102
  Receipt Date: 20200102
  Transmission Date: 20200409
  Serious: Yes (Death)
  Sender: FDA-Public Use
  Company Number: None

PATIENT
  Age: 47 Year
  Sex: Female
  Weight: 67.23 kg

DRUGS (18)
  1. AROMASIN [Concomitant]
     Active Substance: EXEMESTANE
  2. BREO ELLIPTA [Concomitant]
     Active Substance: FLUTICASONE FUROATE\VILANTEROL TRIFENATATE
  3. CARVEDILOL. [Concomitant]
     Active Substance: CARVEDILOL
  4. CLARITIN [Concomitant]
     Active Substance: LORATADINE
  5. DEXAMETHASON [Concomitant]
     Active Substance: DEXAMETHASONE
  6. EFFEXOR [Concomitant]
     Active Substance: VENLAFAXINE HYDROCHLORIDE
  7. METHADONE [Concomitant]
     Active Substance: METHADONE HYDROCHLORIDE
  8. POTASSIUM [Concomitant]
     Active Substance: POTASSIUM
  9. COREG [Concomitant]
     Active Substance: CARVEDILOL
  10. XARELTO [Concomitant]
     Active Substance: RIVAROXABAN
  11. FUROSEMIDE. [Concomitant]
     Active Substance: FUROSEMIDE
  12. OXYCODONE [Concomitant]
     Active Substance: OXYCODONE
  13. SENNOSIDES/DOCUSATE [Concomitant]
  14. PRENISONE [Concomitant]
     Active Substance: PREDNISONE
  15. OMEPRAZOLE. [Concomitant]
     Active Substance: OMEPRAZOLE
  16. AFINITOR [Suspect]
     Active Substance: EVEROLIMUS
     Indication: BREAST CANCER
     Route: 048
     Dates: start: 20190612
  17. ALBUTEROL. [Concomitant]
     Active Substance: ALBUTEROL
  18. XGEVA [Concomitant]
     Active Substance: DENOSUMAB

REACTIONS (1)
  - Death [None]

NARRATIVE: CASE EVENT DATE: 20191218
